FAERS Safety Report 19614962 (Version 1)
Quarter: 2021Q3

REPORT INFORMATION
  Report Type: Spontaneous
  Country: CN (occurrence: CN)
  Receive Date: 20210727
  Receipt Date: 20210727
  Transmission Date: 20211014
  Serious: Yes (Hospitalization, Other)
  Sender: FDA-Public Use
  Company Number: CN-UCBSA-2021035579

PATIENT
  Age: 72 Year
  Sex: Female

DRUGS (10)
  1. GAMMA GLOBULIN [Concomitant]
     Active Substance: IMMUNE GLOBULIN NOS
     Indication: ENCEPHALITIS
     Dosage: 0.4 GRAM PER KILOGRAM
  2. PREDNISONE ACETATE [Concomitant]
     Active Substance: PREDNISONE ACETATE
     Indication: ENCEPHALITIS
     Dosage: 80 MILLIGRAM
     Route: 048
  3. SODIUM VALPROATE [Concomitant]
     Active Substance: VALPROATE SODIUM
     Indication: ENCEPHALITIS
     Dosage: UNKNOWN DOSE
  4. CARBAMAZEPINE. [Concomitant]
     Active Substance: CARBAMAZEPINE
     Indication: TEMPORAL LOBE EPILEPSY
     Dosage: UNKNOWN DOSE
  5. LEVETIRACETAM. [Suspect]
     Active Substance: LEVETIRACETAM
     Indication: SEIZURE
     Dosage: 0.25 GRAM, 2X/DAY (BID)
     Route: 048
  6. RITUXIMAB. [Concomitant]
     Active Substance: RITUXIMAB
     Indication: ENCEPHALITIS
     Dosage: 500 MILLIGRAM PER WEEK
  7. LEVETIRACETAM. [Suspect]
     Active Substance: LEVETIRACETAM
     Indication: ENCEPHALITIS AUTOIMMUNE
     Dosage: 0.5 GRAM, 2X/DAY (BID)
  8. LEVETIRACETAM. [Suspect]
     Active Substance: LEVETIRACETAM
     Indication: OFF LABEL USE
     Dosage: UNKNOWN DOSE
  9. FELODIPINE. [Concomitant]
     Active Substance: FELODIPINE
     Indication: HYPERTENSION
     Dosage: 10 MILLIGRAM, ONCE DAILY (QD)
  10. METHYLPREDNISOLONE. [Concomitant]
     Active Substance: METHYLPREDNISOLONE
     Indication: ENCEPHALITIS
     Dosage: 500 MILLIGRAMS PULSE

REACTIONS (12)
  - Hyponatraemia [Unknown]
  - Altered state of consciousness [Unknown]
  - Drug ineffective [Unknown]
  - Off label use [Unknown]
  - Muscle twitching [Recovered/Resolved]
  - Slow speech [Unknown]
  - Gait disturbance [Recovering/Resolving]
  - Aggression [Unknown]
  - Lethargy [Unknown]
  - Hypersomnia [Unknown]
  - Mental impairment [Recovering/Resolving]
  - Loss of personal independence in daily activities [Unknown]
